FAERS Safety Report 8515663-9 (Version None)
Quarter: 2012Q3

REPORT INFORMATION
  Report Type: 
  Country: None (occurrence: None)
  Receive Date: 20120717
  Receipt Date: 20120711
  Transmission Date: 20120928
  Serious: Yes (Other)
  Sender: FDA-Public Use
  Company Number: PHHY2012BR060552

PATIENT
  Sex: Male
  Weight: 62 kg

DRUGS (2)
  1. RITALIN [Suspect]
     Indication: ATTENTION DEFICIT/HYPERACTIVITY DISORDER
     Dosage: 10 MG, BID, ONE TAB AT 8 AM AND ONE TAB AT 12 AM
     Route: 048
  2. RITALIN [Suspect]
     Dosage: 20 MG, UNK
     Route: 048

REACTIONS (4)
  - AGITATION [None]
  - EYE PAIN [None]
  - DISTURBANCE IN ATTENTION [None]
  - INTRAOCULAR PRESSURE TEST ABNORMAL [None]
